FAERS Safety Report 11006644 (Version 2)
Quarter: 2016Q2

REPORT INFORMATION
  Report Type: Spontaneous
  Country: US (occurrence: US)
  Receive Date: 20150409
  Receipt Date: 20160415
  Transmission Date: 20160815
  Serious: No
  Sender: FDA-Public Use
  Company Number: US-ALLERGAN-1423332US

PATIENT
  Age: 37 Year
  Sex: Female
  Weight: 70.31 kg

DRUGS (1)
  1. LATISSE [Suspect]
     Active Substance: BIMATOPROST
     Indication: GROWTH OF EYELASHES
     Dosage: UNK, QHS
     Route: 061

REACTIONS (3)
  - Madarosis [Not Recovered/Not Resolved]
  - Drug ineffective [Unknown]
  - Trichorrhexis [Not Recovered/Not Resolved]
